FAERS Safety Report 15399343 (Version 1)
Quarter: 2018Q3

REPORT INFORMATION
  Report Type: Spontaneous
  Country: GB (occurrence: GB)
  Receive Date: 20180918
  Receipt Date: 20180918
  Transmission Date: 20181010
  Serious: Yes (Hospitalization)
  Sender: FDA-Public Use
  Company Number: GB-009507513-1809GBR006168

PATIENT
  Age: 63 Year
  Sex: Female

DRUGS (3)
  1. DALTEPARIN SODIUM [Suspect]
     Active Substance: DALTEPARIN SODIUM
     Indication: PULMONARY EMBOLISM
     Dosage: 15000 IU, 1 IN 1 D
     Route: 058
     Dates: start: 20180625, end: 20180804
  2. PEMBROLIZUMAB. [Suspect]
     Active Substance: PEMBROLIZUMAB
     Indication: CLEAR CELL RENAL CELL CARCINOMA
     Dosage: 200 MG, CYCLIC (EVERY THREE WEEKS) ; CYCLICAL
     Route: 042
     Dates: start: 20180706
  3. LENVATINIB [Suspect]
     Active Substance: LENVATINIB
     Indication: CLEAR CELL RENAL CELL CARCINOMA
     Dosage: 20 MG, 1 IN 1 D
     Route: 048
     Dates: start: 20180706, end: 20180803

REACTIONS (1)
  - Renal haemorrhage [Not Recovered/Not Resolved]

NARRATIVE: CASE EVENT DATE: 20180804
